FAERS Safety Report 10366076 (Version 1)
Quarter: 2014Q3

REPORT INFORMATION
  Report Type: Spontaneous
  Country: IT (occurrence: None)
  Receive Date: 20140804
  Receipt Date: 20140804
  Transmission Date: 20150326
  Serious: Yes (Hospitalization)
  Sender: FDA-Public Use
  Company Number: AUR-APL-2014-08190

PATIENT
  Age: 77 Year
  Sex: Male

DRUGS (8)
  1. FUROSEMIDE (FUROSEMIDE) [Concomitant]
     Active Substance: FUROSEMIDE
  2. GLIMIPIRIDE (GLIMEPIRIDE) [Concomitant]
  3. ENAPREN (ENALAPRIL MALEATE) [Concomitant]
     Active Substance: ENALAPRIL MALEATE
  4. METFORMIN [Suspect]
     Active Substance: METFORMIN HYDROCHLORIDE
     Indication: TYPE 2 DIABETES MELLITUS
     Route: 048
     Dates: start: 20140101, end: 20140707
  5. ASPIRIN. [Concomitant]
     Active Substance: ASPIRIN
  6. TORVAST (ATORASTATIN CALCIUM) [Concomitant]
  7. TICAGRELOR (TICAGRELOR) [Concomitant]
     Active Substance: TICAGRELOR
  8. OMEPRAZOLE (OMEPRAZOLE) [Concomitant]
     Active Substance: OMEPRAZOLE

REACTIONS (3)
  - Orthopnoea [None]
  - Lactic acidosis [None]
  - Dyspnoea [None]

NARRATIVE: CASE EVENT DATE: 20140707
